FAERS Safety Report 7224327-3 (Version None)
Quarter: 2011Q1

REPORT INFORMATION
  Report Type: 
  Country: None (occurrence: None)
  Receive Date: 20110104
  Receipt Date: 20101227
  Transmission Date: 20110831
  Serious: Yes (Other)
  Sender: FDA-Public Use
  Company Number: TRP_07373_2010

PATIENT
  Sex: Male

DRUGS (2)
  1. PEGASYS [Suspect]
     Indication: PRODUCT USED FOR UNKNOWN INDICATION
     Dosage: DF
  2. RIBAPAK (NOT SPECIFIED) [Suspect]
     Indication: PRODUCT USED FOR UNKNOWN INDICATION
     Dosage: DF

REACTIONS (10)
  - INFLUENZA LIKE ILLNESS [None]
  - SLEEP DISORDER [None]
  - VOMITING [None]
  - HALLUCINATION [None]
  - SUICIDAL IDEATION [None]
  - NAUSEA [None]
  - DELUSION [None]
  - LETHARGY [None]
  - PYREXIA [None]
  - INSOMNIA [None]
